FAERS Safety Report 23405610 (Version 1)
Quarter: 2024Q1

REPORT INFORMATION
  Report Type: Spontaneous
  Country: AU (occurrence: AU)
  Receive Date: 20240116
  Receipt Date: 20240116
  Transmission Date: 20240410
  Serious: Yes (Hospitalization, Other)
  Sender: FDA-Public Use
  Company Number: AU-OTSUKA AUSTRALIA PHARMACEUTICALS PTY LTD-2023_028750

PATIENT
  Sex: Male

DRUGS (1)
  1. INQOVI [Suspect]
     Active Substance: CEDAZURIDINE\DECITABINE
     Indication: Product used for unknown indication
     Dosage: UNK (35 MG DECITABINE AND 100 MG CEDAZURIDINE) (CYCLE ONE)
     Route: 065

REACTIONS (4)
  - Anal abscess [Recovered/Resolved]
  - Myelosuppression [Recovered/Resolved]
  - Bacterial sepsis [Recovered/Resolved]
  - Febrile neutropenia [Unknown]
